FAERS Safety Report 9531011 (Version 1)
Quarter: 2013Q2

REPORT INFORMATION
  Report Type: Spontaneous
  Country: US (occurrence: None)
  Receive Date: 20130418
  Receipt Date: 20130418
  Transmission Date: 20140414
  Serious: Yes (Life-Threatening)
  Sender: FDA-Public Use
  Company Number: 1204USA04116

PATIENT
  Age: 60 Year
  Sex: Female
  Weight: 106.1 kg

DRUGS (8)
  1. SINGULAIR [Suspect]
     Indication: ASTHMA
     Dosage: 2 TABLETS OF 2.5 MG, ORAL
     Dates: start: 1997
  2. SINGULAIR [Suspect]
     Indication: HYPERSENSITIVITY
     Dosage: 2 TABLETS OF 2.5 MG, ORAL
     Dates: start: 1997
  3. ZANAFLEX (TIZANIDINE HYDROCHLORIDE) [Concomitant]
  4. DIOVAN (VALSARTAN) [Concomitant]
  5. COUMADIN (WARFARIN SODIUM) [Concomitant]
  6. NEURONTIN (GABAPENTIN) [Concomitant]
  7. CLARITIN (LORATADINE) [Concomitant]
  8. PRAVACHOL (PRAVASTATIN SODIUM) [Concomitant]

REACTIONS (3)
  - Abnormal dreams [None]
  - Hallucination [None]
  - Drug administration error [None]
